FAERS Safety Report 14497014 (Version 1)
Quarter: 2018Q1

REPORT INFORMATION
  Report Type: Spontaneous
  Country: US (occurrence: US)
  Receive Date: 20180206
  Receipt Date: 20180206
  Transmission Date: 20180509
  Serious: No
  Sender: FDA-Public Use
  Company Number: None

PATIENT
  Sex: Female

DRUGS (1)
  1. GRANIX [Suspect]
     Active Substance: TBO-FILGRASTIM
     Indication: OVARIAN CANCER
     Dosage: 300 MCG DAILY X 2 DAYS EVERY 21 DAYS SQ
     Route: 058
     Dates: start: 201701

REACTIONS (2)
  - Pruritus [None]
  - Vomiting [None]
